FAERS Safety Report 9379426 (Version 1)
Quarter: 2013Q3

REPORT INFORMATION
  Report Type: Spontaneous
  Country: US (occurrence: US)
  Receive Date: 20130702
  Receipt Date: 20130702
  Transmission Date: 20140515
  Serious: Yes (Other)
  Sender: FDA-Public Use
  Company Number: US-PFIZER INC-2013191989

PATIENT
  Age: 53 Year
  Sex: Female
  Weight: 92.52 kg

DRUGS (18)
  1. XELJANZ [Suspect]
     Indication: RHEUMATOID ARTHRITIS
     Dosage: 5 MG TWO TIMES A DAY
     Route: 048
     Dates: start: 20130515, end: 20130618
  2. COUMADINE [Concomitant]
     Dosage: 10 MG
  3. FERRLECIT [Concomitant]
     Dosage: 62.5 MG/5 ML
     Route: 042
  4. HUMIRA [Concomitant]
     Dosage: UNK
  5. CETIRIZINE [Concomitant]
     Dosage: UNK
  6. SINGULAIR [Concomitant]
     Dosage: UNK
  7. NEXIUM [Concomitant]
     Dosage: UNK
  8. VITAMIN B12 [Concomitant]
     Dosage: UNK
  9. CARBAMAZEPINE [Concomitant]
     Dosage: UNK
  10. TOPAMAX [Concomitant]
     Dosage: UNK
  11. PERCOCET [Concomitant]
     Dosage: AS NEEDED
  12. DICLOFENAC [Concomitant]
     Dosage: UNK
     Route: 061
  13. LOSARTAN [Concomitant]
     Dosage: UNK
  14. FUROSEMIDE [Concomitant]
     Dosage: UNK
  15. GABAPENTIN [Concomitant]
     Dosage: UNK
  16. TRAMADOL [Concomitant]
     Dosage: AS NEEDED
  17. DOCUSATE [Concomitant]
     Dosage: UNK
  18. SIMVASTATIN [Concomitant]
     Dosage: UNK

REACTIONS (3)
  - International normalised ratio increased [Not Recovered/Not Resolved]
  - Blood disorder [Not Recovered/Not Resolved]
  - Coagulopathy [Not Recovered/Not Resolved]
